FAERS Safety Report 10058510 (Version 1)
Quarter: 2014Q2

REPORT INFORMATION
  Report Type: Spontaneous
  Country: US (occurrence: US)
  Receive Date: 20140404
  Receipt Date: 20140404
  Transmission Date: 20141212
  Serious: Yes (Other)
  Sender: FDA-Public Use
  Company Number: US-BAYER-2014-049115

PATIENT
  Age: 41 Year
  Sex: Female
  Weight: 62 kg

DRUGS (4)
  1. YAZ [Suspect]
  2. SYNTHROID [Concomitant]
     Dosage: 0.05 MG, UNK
     Route: 048
     Dates: start: 20060511
  3. DICYCLOMINE [Concomitant]
     Dosage: 20 MG, UNK
     Route: 048
     Dates: start: 20060602
  4. YASMIN [Suspect]

REACTIONS (1)
  - Deep vein thrombosis [None]
